FAERS Safety Report 8180521-9 (Version None)
Quarter: 2012Q1

REPORT INFORMATION
  Report Type: 
  Country: None (occurrence: None)
  Receive Date: 20120302
  Receipt Date: 20120229
  Transmission Date: 20120608
  Serious: Yes (Other)
  Sender: FDA-Public Use
  Company Number: CN-ROCHE-1044469

PATIENT
  Age: 40 Year
  Sex: Female

DRUGS (5)
  1. CYCLOPHOSPHAMIDE [Concomitant]
     Indication: LYMPHOMA
     Dates: start: 20120207
  2. MABTHERA [Suspect]
     Indication: LYMPHOMA
     Dates: start: 20120207
  3. VINCRISTINE [Concomitant]
     Indication: LYMPHOMA
     Dates: start: 20120207
  4. PREDNISONE TAB [Concomitant]
     Indication: LYMPHOMA
     Dates: start: 20120207
  5. DOXORUBICIN HCL [Concomitant]
     Indication: LYMPHOMA
     Dates: start: 20120207

REACTIONS (1)
  - STOMATITIS RADIATION [None]
